FAERS Safety Report 7248980-3 (Version None)
Quarter: 2011Q1

REPORT INFORMATION
  Report Type: 
  Country: None (occurrence: None)
  Receive Date: 20110128
  Receipt Date: 20101006
  Transmission Date: 20110831
  Serious: Yes (Hospitalization, Other)
  Sender: FDA-Public Use
  Company Number: US-BAYER-201028372NA

PATIENT
  Sex: Female
  Weight: 81.818 kg

DRUGS (5)
  1. YAZ [Suspect]
  2. YAZ [Suspect]
     Indication: MENORRHAGIA
  3. YAZ [Suspect]
     Indication: PREMENSTRUAL SYNDROME
     Route: 048
     Dates: start: 20080701, end: 20081001
  4. NSAID'S [Concomitant]
     Dosage: OTC BRANDS AS NEEDED (NOS)
  5. MULTI-VITAMINS [Concomitant]

REACTIONS (2)
  - CHEST PAIN [None]
  - PULMONARY EMBOLISM [None]
